FAERS Safety Report 14045777 (Version 3)
Quarter: 2017Q4

REPORT INFORMATION
  Report Type: Report from Study
  Country: KR (occurrence: KR)
  Receive Date: 20171005
  Receipt Date: 20171027
  Transmission Date: 20180321
  Serious: Yes (Hospitalization)
  Sender: FDA-Public Use
  Company Number: KR-PFIZER INC-2017418294

PATIENT
  Age: 70 Year
  Sex: Female
  Weight: 41.8 kg

DRUGS (2)
  1. BENZYDAMINE [Concomitant]
     Active Substance: BENZYDAMINE
     Indication: STOMATITIS
     Dosage: UNK
     Route: 050
     Dates: start: 20170922
  2. AXITINIB [Suspect]
     Active Substance: AXITINIB
     Indication: ADENOID CYSTIC CARCINOMA
     Dosage: 5 MG, 2X/DAY
     Route: 048
     Dates: start: 20170825, end: 20170921

REACTIONS (2)
  - Diarrhoea [Recovered/Resolved]
  - Acute kidney injury [Recovered/Resolved]

NARRATIVE: CASE EVENT DATE: 20170926
